FAERS Safety Report 14712945 (Version 1)
Quarter: 2018Q1

REPORT INFORMATION
  Report Type: Spontaneous
  Country: US (occurrence: US)
  Receive Date: 20180330
  Receipt Date: 20180330
  Transmission Date: 20180509
  Serious: Yes (Hospitalization)
  Sender: FDA-Public Use
  Company Number: None

PATIENT
  Age: 8 Year
  Sex: Female
  Weight: 30 kg

DRUGS (1)
  1. MESALAMINE FOAM ENEMA [Suspect]
     Active Substance: MESALAMINE
     Indication: COLITIS
     Dosage: ?          QUANTITY:7 UNITS;?
     Route: 054
     Dates: start: 20180105, end: 20180111

REACTIONS (3)
  - Pain in extremity [None]
  - Systemic lupus erythematosus [None]
  - Skin discolouration [None]

NARRATIVE: CASE EVENT DATE: 20180109
